FAERS Safety Report 20673122 (Version 3)
Quarter: 2022Q2

REPORT INFORMATION
  Report Type: Spontaneous
  Country: US (occurrence: None)
  Receive Date: 20220405
  Receipt Date: 20220511
  Transmission Date: 20220720
  Serious: Yes (Other)
  Sender: FDA-Public Use
  Company Number: 2022A131045

PATIENT
  Sex: Female
  Weight: 49.9 kg

DRUGS (3)
  1. BUDESONIDE\FORMOTEROL FUMARATE DIHYDRATE [Suspect]
     Active Substance: BUDESONIDE\FORMOTEROL FUMARATE DIHYDRATE
     Indication: Asthma
     Dosage: 160/4.5
     Route: 055
     Dates: start: 20180201
  2. ALBUTEROL [Concomitant]
     Active Substance: ALBUTEROL
     Indication: Asthma
  3. NYSTATIN [Concomitant]
     Active Substance: NYSTATIN

REACTIONS (10)
  - Chest pain [Unknown]
  - Oral infection [Unknown]
  - Dyspnoea [Unknown]
  - Malaise [Unknown]
  - Middle insomnia [Unknown]
  - Hypopnoea [Unknown]
  - Headache [Unknown]
  - Chest discomfort [Unknown]
  - Device use issue [Unknown]
  - Device malfunction [Unknown]
